FAERS Safety Report 8012433-5 (Version None)
Quarter: 2011Q4

REPORT INFORMATION
  Report Type: 
  Country: None (occurrence: None)
  Receive Date: 20111228
  Receipt Date: 20111220
  Transmission Date: 20120403
  Serious: Yes (Hospitalization, Other)
  Sender: FDA-Public Use
  Company Number: DE-ABBOTT-11P-062-0866945-00

PATIENT
  Sex: Female
  Weight: 87 kg

DRUGS (1)
  1. HUMIRA [Suspect]
     Indication: RHEUMATOID ARTHRITIS
     Route: 058
     Dates: start: 20100210, end: 20111004

REACTIONS (4)
  - INTERTRIGO CANDIDA [None]
  - LEUKOCYTOCLASTIC VASCULITIS [None]
  - PSORIASIS [None]
  - SKIN ULCER [None]
